FAERS Safety Report 15122720 (Version 1)
Quarter: 2018Q3

REPORT INFORMATION
  Report Type: Spontaneous
  Country: US (occurrence: US)
  Receive Date: 20180709
  Receipt Date: 20180709
  Transmission Date: 20181010
  Serious: Yes (Other)
  Sender: FDA-Public Use
  Company Number: US-SA-2018SA174182

PATIENT
  Age: 78 Year
  Sex: Male

DRUGS (5)
  1. DULCOLAX PINK [Suspect]
     Active Substance: BISACODYL
  2. LACTULOSE. [Concomitant]
     Active Substance: LACTULOSE
  3. PLAVIX [Concomitant]
     Active Substance: CLOPIDOGREL BISULFATE
  4. ASPIRINE [Concomitant]
     Active Substance: ASPIRIN
  5. MIRALAX [Concomitant]
     Active Substance: POLYETHYLENE GLYCOL 3350

REACTIONS (6)
  - Bowel movement irregularity [Unknown]
  - Cardiac dysfunction [Unknown]
  - Product use issue [Unknown]
  - Drug ineffective [Unknown]
  - Flatulence [Unknown]
  - Diarrhoea [Unknown]
